FAERS Safety Report 16375787 (Version 1)
Quarter: 2019Q2

REPORT INFORMATION
  Report Type: Spontaneous
  Country: US (occurrence: US)
  Receive Date: 20190531
  Receipt Date: 20190531
  Transmission Date: 20190711
  Serious: No
  Sender: FDA-Public Use
  Company Number: US-ELI_LILLY_AND_COMPANY-US201905015773

PATIENT
  Sex: Female

DRUGS (5)
  1. OTEZLA [Concomitant]
     Active Substance: APREMILAST
     Indication: PSORIATIC ARTHROPATHY
  2. PLAQUENIL [Concomitant]
     Active Substance: HYDROXYCHLOROQUINE SULFATE
     Indication: PSORIATIC ARTHROPATHY
  3. LIALDA [Concomitant]
     Active Substance: MESALAMINE
     Indication: PSORIATIC ARTHROPATHY
  4. TYLENOL [Concomitant]
     Active Substance: ACETAMINOPHEN
     Indication: PSORIATIC ARTHROPATHY
  5. TALTZ [Suspect]
     Active Substance: IXEKIZUMAB
     Indication: PSORIATIC ARTHROPATHY
     Dosage: 80 MG, UNKNOWN
     Route: 058
     Dates: start: 201803

REACTIONS (9)
  - Oesophageal infection [Unknown]
  - Eating disorder [Unknown]
  - Asthenia [Unknown]
  - Candida infection [Unknown]
  - Weight decreased [Unknown]
  - Arthropathy [Unknown]
  - Blood potassium decreased [Unknown]
  - Arthritis [Unknown]
  - Peripheral swelling [Unknown]

NARRATIVE: CASE EVENT DATE: 201808
